FAERS Safety Report 4980164-1 (Version None)
Quarter: 2006Q2

REPORT INFORMATION
  Report Type: 
  Country: None (occurrence: None)
  Receive Date: 20060424
  Receipt Date: 20060413
  Transmission Date: 20061013
  Serious: Yes (Hospitalization)
  Sender: FDA-Public Use
  Company Number: US-JNJFOC-20060403246

PATIENT
  Sex: Female

DRUGS (27)
  1. REMICADE [Suspect]
     Route: 042
  2. REMICADE [Suspect]
     Indication: RHEUMATOID ARTHRITIS
     Route: 042
  3. ALLEGRA [Concomitant]
  4. PRILOSEC [Concomitant]
  5. BENICAR [Concomitant]
  6. METHOTREXATE [Concomitant]
  7. ZOLOFT [Concomitant]
  8. ADVAIR INHALER [Concomitant]
  9. ADVAIR INHALER [Concomitant]
  10. ASCORBIC ACID [Concomitant]
  11. VITAMIN E [Concomitant]
  12. POTASSIUM [Concomitant]
  13. CALTRATE [Concomitant]
  14. CENTRUM SILVER [Concomitant]
  15. CENTRUM SILVER [Concomitant]
  16. CENTRUM SILVER [Concomitant]
  17. CENTRUM SILVER [Concomitant]
  18. CENTRUM SILVER [Concomitant]
  19. CENTRUM SILVER [Concomitant]
  20. CENTRUM SILVER [Concomitant]
  21. CENTRUM SILVER [Concomitant]
  22. TRAZODONE HCL [Concomitant]
  23. ASPIRIN [Concomitant]
  24. TRIAMTERENE [Concomitant]
  25. ESTROGENS SOL/INJ [Concomitant]
  26. FOLIC ACID [Concomitant]
  27. FOSAMAX [Concomitant]

REACTIONS (2)
  - FOOT OPERATION [None]
  - STAPHYLOCOCCAL INFECTION [None]
